FAERS Safety Report 16641662 (Version 1)
Quarter: 2019Q3

REPORT INFORMATION
  Report Type: Spontaneous
  Country: US (occurrence: US)
  Receive Date: 20190726
  Receipt Date: 20190726
  Transmission Date: 20191004
  Serious: Yes (Hospitalization)
  Sender: FDA-Public Use
  Company Number: None

PATIENT
  Age: 62 Year
  Sex: Male

DRUGS (6)
  1. FUROSEMIDE TAB 40 MG [Concomitant]
  2. METOPROLOL SUC TAB 25 MG ER [Concomitant]
  3. AMOX/K CLAV TAB 875-125 [Concomitant]
  4. ENOXAPARIN INJ 100 MG/ML [Concomitant]
  5. SILDENAFIL. [Suspect]
     Active Substance: SILDENAFIL
     Indication: PULMONARY HYPERTENSION
  6. DOK CAP 100 MG [Concomitant]

REACTIONS (2)
  - Vomiting [None]
  - Aspiration [None]

NARRATIVE: CASE EVENT DATE: 20190714
